FAERS Safety Report 23934445 (Version 1)
Quarter: 2024Q2

REPORT INFORMATION
  Report Type: Spontaneous
  Country: US (occurrence: US)
  Receive Date: 20240603
  Receipt Date: 20240603
  Transmission Date: 20240716
  Serious: Yes (Other)
  Sender: FDA-Public Use
  Company Number: US-APELLIS-2024-APL-0000043

PATIENT

DRUGS (2)
  1. SYFOVRE [Suspect]
     Active Substance: PEGCETACOPLAN
     Indication: Product used for unknown indication
     Dosage: UNKNOWN
     Route: 031
  2. EYLEA [Concomitant]
     Active Substance: AFLIBERCEPT

REACTIONS (5)
  - Vision blurred [Unknown]
  - Staphylococcal infection [Unknown]
  - Pain [Unknown]
  - Iridocyclitis [Unknown]
  - Uveitis [Unknown]

NARRATIVE: CASE EVENT DATE: 20240422
